FAERS Safety Report 6943850-X (Version None)
Quarter: 2010Q3

REPORT INFORMATION
  Report Type: 
  Country: None (occurrence: None)
  Receive Date: 20100826
  Receipt Date: 20100823
  Transmission Date: 20110219
  Serious: Yes (Other)
  Sender: FDA-Public Use
  Company Number: A0875070A

PATIENT
  Age: 49 Year
  Sex: Male

DRUGS (3)
  1. ZOFRAN [Suspect]
     Indication: NAUSEA
     Dates: start: 20100601
  2. COMPAZINE [Suspect]
     Indication: NAUSEA
     Dates: start: 20100601
  3. CHEMOTHERAPY [Concomitant]

REACTIONS (2)
  - DEHYDRATION [None]
  - DRUG INEFFECTIVE [None]
